FAERS Safety Report 7149542-9 (Version None)
Quarter: 2010Q4

REPORT INFORMATION
  Report Type: 
  Country: None (occurrence: None)
  Receive Date: 20101209
  Receipt Date: 20101120
  Transmission Date: 20110411
  Serious: Yes (Hospitalization)
  Sender: FDA-Public Use
  Company Number: JP-AMGEN-JPNSP2010006217

PATIENT

DRUGS (1)
  1. ENBREL [Suspect]
     Indication: RHEUMATOID ARTHRITIS
     Dosage: UNK
     Route: 058
     Dates: start: 20070701, end: 20100701

REACTIONS (2)
  - HISTIOCYTOSIS HAEMATOPHAGIC [None]
  - SYSTEMIC LUPUS ERYTHEMATOSUS [None]
